FAERS Safety Report 9419405 (Version 1)
Quarter: 2013Q3

REPORT INFORMATION
  Report Type: Spontaneous
  Country: FR (occurrence: FR)
  Receive Date: 20130725
  Receipt Date: 20130725
  Transmission Date: 20140515
  Serious: Yes (Hospitalization, Disabling)
  Sender: FDA-Public Use
  Company Number: FR-ROCHE-1251056

PATIENT
  Age: 62 Year
  Sex: Female

DRUGS (6)
  1. MABTHERA [Suspect]
     Indication: CHRONIC LYMPHOCYTIC LEUKAEMIA
     Dosage: CYCLE
     Route: 042
     Dates: start: 20121026, end: 20130311
  2. FLUDARABINE PHOSPHATE [Suspect]
     Indication: CHRONIC LYMPHOCYTIC LEUKAEMIA
     Dosage: CYCLE
     Route: 042
     Dates: start: 20121026, end: 20130311
  3. CICLOSPORINE [Suspect]
     Indication: CHRONIC LYMPHOCYTIC LEUKAEMIA
     Route: 065
  4. ESIDREX [Concomitant]
     Route: 065
     Dates: end: 201301
  5. CORTANCYL [Concomitant]
     Route: 065
     Dates: end: 201301
  6. BACTRIM [Concomitant]
     Route: 065
     Dates: end: 201301

REACTIONS (1)
  - Progressive multifocal leukoencephalopathy [Not Recovered/Not Resolved]
